FAERS Safety Report 5813127-4 (Version None)
Quarter: 2008Q3

REPORT INFORMATION
  Report Type: 
  Country: None (occurrence: None)
  Receive Date: 20080717
  Receipt Date: 20080214
  Transmission Date: 20090109
  Serious: No
  Sender: FDA-Public Use
  Company Number: A0708480A

PATIENT
  Age: 47 Year
  Sex: Female

DRUGS (1)
  1. NICORETTE [Suspect]
     Indication: DRUG USE FOR UNKNOWN INDICATION

REACTIONS (7)
  - DYSPNOEA [None]
  - HYPERSENSITIVITY [None]
  - ORAL DISCOMFORT [None]
  - PANIC REACTION [None]
  - SUFFOCATION FEELING [None]
  - THERMAL BURN [None]
  - THROAT TIGHTNESS [None]
